FAERS Safety Report 9536299 (Version 1)
Quarter: 2013Q3

REPORT INFORMATION
  Report Type: Spontaneous
  Country: US (occurrence: None)
  Receive Date: 20130917
  Receipt Date: 20130917
  Transmission Date: 20140515
  Serious: Yes (Life-Threatening, Disabling)
  Sender: FDA-Public Use
  Company Number: None

PATIENT
  Age: 65 Year
  Sex: Female
  Weight: 72.12 kg

DRUGS (2)
  1. SIMVASTATIN [Suspect]
     Indication: BLOOD CHOLESTEROL INCREASED
     Route: 048
     Dates: start: 20101115, end: 20130215
  2. GENERIC FORM OF SYNTHROID [Concomitant]

REACTIONS (4)
  - Neuralgia [None]
  - Myalgia [None]
  - Abasia [None]
  - Jaw disorder [None]
